FAERS Safety Report 21860174 (Version 1)
Quarter: 2023Q1

REPORT INFORMATION
  Report Type: Spontaneous
  Country: US (occurrence: None)
  Receive Date: 20230113
  Receipt Date: 20230113
  Transmission Date: 20230418
  Serious: Yes (unspecified)
  Sender: FDA-Public Use
  Company Number: None

PATIENT
  Age: 68 Year
  Sex: Male

DRUGS (1)
  1. CEFEPIME HYDROCHLORIDE [Suspect]
     Active Substance: CEFEPIME HYDROCHLORIDE
     Indication: Infection
     Dates: start: 20221227, end: 20221229

REACTIONS (6)
  - Toxicity to various agents [None]
  - Neurotoxicity [None]
  - Toxic encephalopathy [None]
  - Dialysis [None]
  - Intentional product use issue [None]
  - Creatinine renal clearance decreased [None]

NARRATIVE: CASE EVENT DATE: 20221228
